FAERS Safety Report 4276736-2 (Version None)
Quarter: 2004Q1

REPORT INFORMATION
  Report Type: 
  Country: None (occurrence: None)
  Receive Date: 20040120
  Receipt Date: 20040108
  Transmission Date: 20041129
  Serious: Yes (Death)
  Sender: FDA-Public Use
  Company Number: NL-JNJFOC-20040101298

PATIENT
  Age: 68 Year
  Sex: Female

DRUGS (3)
  1. RISPERDAL CONSTA [Suspect]
     Indication: SCHIZOPHRENIA, PARANOID TYPE
     Dosage: 37.5 MG, 1 IN 2 WEEK, INTRA-MUSCULAR
     Route: 030
     Dates: start: 20031201, end: 20031215
  2. AKINETON [Concomitant]
  3. HALDOL DECANOATE (INJECTION) (HALOPERIDOL DECONATE) [Concomitant]

REACTIONS (5)
  - CARDIAC DEATH [None]
  - COUGH [None]
  - DIZZINESS [None]
  - NERVOUSNESS [None]
  - SUDDEN DEATH [None]
